FAERS Safety Report 13766109 (Version 1)
Quarter: 2017Q3

REPORT INFORMATION
  Report Type: Spontaneous
  Country: US (occurrence: US)
  Receive Date: 20170719
  Receipt Date: 20170719
  Transmission Date: 20171127
  Serious: No
  Sender: FDA-Public Use
  Company Number: US-ENDO PHARMACEUTICALS INC-2016SCPR015661

PATIENT
  Age: 71 Year
  Sex: Female

DRUGS (3)
  1. CALCITONIN [Suspect]
     Active Substance: CALCITONIN
     Dosage: 1 SPR, OD, IN ALTERNATING NOSTRIL
     Route: 045
     Dates: start: 20160713
  2. CALCITONIN [Suspect]
     Active Substance: CALCITONIN
     Indication: OSTEOPOROSIS
     Dosage: 1 SPR, OD, IN ALTERNATING NOSTRIL
     Route: 045
     Dates: start: 2012
  3. CALCITONIN [Suspect]
     Active Substance: CALCITONIN
     Dosage: 1 SPR, OD, IN ALTERNATING NOSTRIL
     Route: 045
     Dates: start: 2016, end: 20160712

REACTIONS (1)
  - Product taste abnormal [Unknown]

NARRATIVE: CASE EVENT DATE: 20160711
